FAERS Safety Report 9742210 (Version 4)
Quarter: 2014Q1

REPORT INFORMATION
  Report Type: Spontaneous
  Country: JP (occurrence: JP)
  Receive Date: 20131210
  Receipt Date: 20140203
  Transmission Date: 20141002
  Serious: Yes (Other)
  Sender: FDA-Public Use
  Company Number: JP-TAKEDA-2013TUS002760

PATIENT
  Sex: 0

DRUGS (2)
  1. FEBURIC [Suspect]
     Indication: HYPERURICAEMIA
     Dosage: 10 MG, QD
     Route: 048
     Dates: start: 20130301, end: 20130410
  2. LASIX                              /00032601/ [Concomitant]
     Indication: OEDEMA DUE TO CARDIAC DISEASE
     Dosage: 20 MG, QD
     Route: 048
     Dates: start: 20130208, end: 20130605

REACTIONS (1)
  - Interstitial lung disease [Not Recovered/Not Resolved]
